FAERS Safety Report 7917229-8 (Version None)
Quarter: 2011Q4

REPORT INFORMATION
  Report Type: 
  Country: None (occurrence: None)
  Receive Date: 20111116
  Receipt Date: 20111103
  Transmission Date: 20120403
  Serious: Yes (Hospitalization, Other)
  Sender: FDA-Public Use
  Company Number: PHHY2011DE93044

PATIENT
  Sex: Male
  Weight: 74 kg

DRUGS (5)
  1. MARCUMAR [Concomitant]
     Dates: start: 20060101
  2. CALCIUM [Concomitant]
     Dosage: 500 MG PER DAY
     Route: 048
  3. ZOMETA [Suspect]
     Indication: BONE DISORDER
     Dosage: 4 MG, EVERY 4 WEEKS
     Route: 042
     Dates: start: 20110726, end: 20110726
  4. VITAMIN D [Concomitant]
     Route: 048
  5. DIGITOXIN TAB [Concomitant]

REACTIONS (4)
  - DYSPNOEA [None]
  - VEIN DISORDER [None]
  - CARDIAC FAILURE [None]
  - OEDEMA PERIPHERAL [None]
